FAERS Safety Report 5295750-1 (Version None)
Quarter: 2007Q2

REPORT INFORMATION
  Report Type: 
  Country: None (occurrence: None)
  Receive Date: 20070413
  Receipt Date: 20070405
  Transmission Date: 20071010
  Serious: Yes (Hospitalization)
  Sender: FDA-Public Use
  Company Number: CA-AVENTIS-200113018GDDC

PATIENT
  Sex: Female
  Weight: 71 kg

DRUGS (6)
  1. DOCETAXEL [Suspect]
     Indication: BREAST CANCER
     Route: 042
     Dates: start: 20010313, end: 20010313
  2. DOXORUBICIN HCL [Suspect]
     Indication: BREAST CANCER
     Route: 042
     Dates: start: 20010313, end: 20010313
  3. CYCLOPHOSPHAMIDE [Suspect]
     Indication: BREAST CANCER
     Route: 042
     Dates: start: 20010313, end: 20010313
  4. DEXAMETHASONE [Suspect]
     Route: 048
     Dates: start: 20010312, end: 20010314
  5. SEPTRA [Concomitant]
     Dates: start: 20010317
  6. COLACE [Concomitant]

REACTIONS (6)
  - ABDOMINAL PAIN [None]
  - CONSTIPATION [None]
  - HAEMOGLOBIN DECREASED [None]
  - PERFORATED ULCER [None]
  - PLATELET COUNT DECREASED [None]
  - PNEUMOPERITONEUM [None]
